FAERS Safety Report 15440352 (Version 1)
Quarter: 2018Q3

REPORT INFORMATION
  Report Type: Spontaneous
  Country: DE (occurrence: DE)
  Receive Date: 20180928
  Receipt Date: 20180928
  Transmission Date: 20181010
  Serious: Yes (Disabling)
  Sender: FDA-Public Use
  Company Number: DE-PFIZER INC-2018385563

PATIENT
  Age: 29 Year
  Sex: Male
  Weight: 95 kg

DRUGS (1)
  1. MINOXIDIL. [Suspect]
     Active Substance: MINOXIDIL
     Indication: HAIR GROWTH ABNORMAL
     Dosage: APPLICATION ON 2 DAYS, EACH 1X
     Route: 061
     Dates: start: 2017

REACTIONS (7)
  - Libido decreased [Not Recovered/Not Resolved]
  - Testicular pain [Not Recovered/Not Resolved]
  - Semen liquefaction [Not Recovered/Not Resolved]
  - Testicular atrophy [Not Recovered/Not Resolved]
  - Product use in unapproved indication [Not Recovered/Not Resolved]
  - Penile pain [Not Recovered/Not Resolved]
  - Erectile dysfunction [Not Recovered/Not Resolved]

NARRATIVE: CASE EVENT DATE: 2018
